FAERS Safety Report 21206139 (Version 1)
Quarter: 2022Q3

REPORT INFORMATION
  Report Type: Spontaneous
  Country: US (occurrence: US)
  Receive Date: 20220812
  Receipt Date: 20220812
  Transmission Date: 20221026
  Serious: Yes (Hospitalization, Other)
  Sender: FDA-Public Use
  Company Number: US-BION-010890

PATIENT
  Age: 41 Year
  Sex: Female

DRUGS (1)
  1. ETHOSUXIMIDE [Suspect]
     Active Substance: ETHOSUXIMIDE

REACTIONS (9)
  - Intentional overdose [Not Recovered/Not Resolved]
  - Intentional self-injury [Unknown]
  - Seizure [Unknown]
  - Tachycardia [Unknown]
  - Hypotension [Unknown]
  - Hypothermia [Unknown]
  - Hypokalaemia [Unknown]
  - Anion gap increased [Unknown]
  - Blood lactic acid increased [Unknown]
